FAERS Safety Report 21077706 (Version 6)
Quarter: 2023Q1

REPORT INFORMATION
  Report Type: Report from Study
  Country: SE (occurrence: SE)
  Receive Date: 20220713
  Receipt Date: 20230317
  Transmission Date: 20230418
  Serious: Yes (Other)
  Sender: FDA-Public Use
  Company Number: SE-VERTEX PHARMACEUTICALS-2022-010116

PATIENT
  Age: 37 Year
  Sex: Male
  Weight: 77 kg

DRUGS (19)
  1. ELEXACAFTOR\IVACAFTOR\TEZACAFTOR [Suspect]
     Active Substance: ELEXACAFTOR\IVACAFTOR\TEZACAFTOR
     Indication: Cystic fibrosis
     Dosage: BID
     Route: 048
     Dates: start: 20220530, end: 20220707
  2. ELEXACAFTOR\IVACAFTOR\TEZACAFTOR [Suspect]
     Active Substance: ELEXACAFTOR\IVACAFTOR\TEZACAFTOR
     Dosage: BID
     Route: 048
     Dates: start: 20220801, end: 20220823
  3. PLACEBO [Suspect]
     Active Substance: UNSPECIFIED INGREDIENT
     Indication: Cystic fibrosis
     Dosage: BID
     Route: 048
     Dates: start: 20220530, end: 20220707
  4. PLACEBO [Suspect]
     Active Substance: UNSPECIFIED INGREDIENT
     Dosage: BID
     Route: 048
     Dates: start: 20220801, end: 20220823
  5. BROMHEXINE [Concomitant]
     Active Substance: BROMHEXINE
     Indication: Cystic fibrosis
     Dosage: 8 MG, 3X2
     Route: 048
     Dates: start: 1992
  6. ACETYLCYSTEINE [Concomitant]
     Active Substance: ACETYLCYSTEINE
     Indication: Cystic fibrosis
     Dosage: 600 MG X2
     Route: 048
     Dates: start: 1992
  7. INNOVAIR [Concomitant]
     Active Substance: BECLOMETHASONE DIPROPIONATE\FORMOTEROL
     Indication: Cystic fibrosis
     Dosage: 2 MILLILITER X2
     Dates: start: 202103
  8. DORNASE ALFA [Concomitant]
     Active Substance: DORNASE ALFA
     Indication: Cystic fibrosis
     Dosage: 2.5 MILLILITER X2
     Dates: start: 2012
  9. ALBUTEROL [Concomitant]
     Active Substance: ALBUTEROL
     Indication: Cystic fibrosis
     Dosage: 0.2 MILLIGRAM, PRN
     Dates: start: 1992
  10. SODIUM CHLORIDE [Concomitant]
     Active Substance: SODIUM CHLORIDE
     Indication: Cystic fibrosis
     Dosage: X2
  11. AZITHROMYCIN [Concomitant]
     Active Substance: AZITHROMYCIN
     Indication: Cystic fibrosis
     Dosage: 500 MG, 3/WEEK
     Dates: start: 2007
  12. .ALPHA.-TOCOPHEROL ACETATE [Concomitant]
     Active Substance: .ALPHA.-TOCOPHEROL ACETATE
     Indication: Cystic fibrosis
     Dosage: 400 MG X2
     Route: 048
     Dates: start: 1992
  13. VITAMIN D [Concomitant]
     Active Substance: VITAMIN D NOS
     Indication: Cystic fibrosis
     Dosage: UNK
     Route: 048
     Dates: start: 2013
  14. URSODEOXYCHOL ACID [Concomitant]
     Indication: Cystic fibrosis
     Dosage: 1 GRAM X2
     Route: 048
     Dates: start: 2007
  15. POLYETHYLENE GLYCOLS [Concomitant]
     Active Substance: POLYETHYLENE GLYCOLS
     Indication: Cystic fibrosis
     Dosage: UNK, PRN
     Route: 048
     Dates: start: 2013
  16. DESLORATADINE [Concomitant]
     Active Substance: DESLORATADINE
     Indication: Seasonal allergy
     Dosage: UNK, PRN
     Route: 048
     Dates: start: 2007
  17. DESLORATADINE [Concomitant]
     Active Substance: DESLORATADINE
     Indication: Allergy to animal
  18. UNSPECIFIED INGREDIENT [Concomitant]
     Active Substance: UNSPECIFIED INGREDIENT
     Indication: Cystic fibrosis
     Dosage: UNK
     Route: 048
     Dates: start: 1992
  19. VITAMINS [Concomitant]
     Active Substance: VITAMINS
     Indication: Cystic fibrosis
     Dosage: UNK
     Route: 048
     Dates: start: 1992

REACTIONS (1)
  - Seizure [Recovered/Resolved]

NARRATIVE: CASE EVENT DATE: 20220703
